FAERS Safety Report 18466163 (Version 1)
Quarter: 2020Q4

REPORT INFORMATION
  Report Type: Other
  Country: CA (occurrence: CA)
  Receive Date: 20201105
  Receipt Date: 20201105
  Transmission Date: 20210114
  Serious: Yes (Other)
  Sender: FDA-Public Use
  Company Number: CA-APOTEX-2020AP020878

PATIENT
  Sex: Female

DRUGS (2)
  1. CELEBREX [Interacting]
     Active Substance: CELECOXIB
     Indication: EYE DISORDER
     Route: 065
  2. DULOXETINE. [Suspect]
     Active Substance: DULOXETINE
     Indication: ARTHRALGIA
     Dosage: 30 MILLIGRAM
     Route: 065

REACTIONS (4)
  - Product use in unapproved indication [Unknown]
  - Petechiae [Unknown]
  - Off label use [Unknown]
  - Drug interaction [Unknown]
